FAERS Safety Report 10088003 (Version 2)
Quarter: 2014Q2

REPORT INFORMATION
  Report Type: Spontaneous
  Country: ZA (occurrence: ZA)
  Receive Date: 20140420
  Receipt Date: 20140420
  Transmission Date: 20141212
  Serious: Yes (Hospitalization)
  Sender: FDA-Public Use
  Company Number: PHHY2014ZA036165

PATIENT
  Sex: Male

DRUGS (7)
  1. CO-DIOVAN [Suspect]
     Indication: HYPERTENSION
     Dosage: UNK UKN, UNK
     Dates: start: 2011
  2. BRINERDIN [Suspect]
     Indication: HYPERTENSION
     Dosage: UNK UKN, UNK
     Dates: start: 1977
  3. BRINERDIN [Suspect]
     Dosage: UNK
  4. BRINERDIN [Suspect]
     Dosage: UNK
  5. BRINERDIN [Suspect]
     Dosage: UNK UKN, UNK
  6. BILOCOR [Concomitant]
     Indication: HYPERTENSION
     Dosage: UNK UKN, UNK
  7. AMLOSYN [Concomitant]
     Dosage: UNK UKN, UNK

REACTIONS (2)
  - Blood pressure increased [Unknown]
  - Weight increased [Unknown]
